FAERS Safety Report 5079632-6 (Version None)
Quarter: 2006Q3

REPORT INFORMATION
  Report Type: 
  Country: None (occurrence: None)
  Receive Date: 20060814
  Receipt Date: 20060719
  Transmission Date: 20061208
  Serious: Yes (Other)
  Sender: FDA-Public Use
  Company Number: DE-AMGEN-UK186601

PATIENT
  Sex: Female

DRUGS (16)
  1. MIMPARA [Suspect]
     Indication: HYPERPARATHYROIDISM SECONDARY
     Route: 048
     Dates: start: 20060510, end: 20060621
  2. NEORECORMON [Concomitant]
     Dates: start: 20051220
  3. FUROSEMIDE [Concomitant]
     Dates: start: 20050304
  4. ERYPO [Concomitant]
     Dates: start: 20010205
  5. ALFACALCIDOL [Concomitant]
     Dates: start: 20001226
  6. ARANESP [Concomitant]
     Dates: start: 20040207
  7. NIFEDIPINE [Concomitant]
     Dates: start: 20010105
  8. TENORMIN [Concomitant]
     Dates: start: 20010105
  9. AMOXYPEN [Concomitant]
     Dates: start: 20020923
  10. IRON [Concomitant]
     Dates: start: 20010105
  11. ENALAPRIL MALEATE [Concomitant]
     Dates: start: 20011129
  12. CALCIUM CARBONATE [Concomitant]
     Dates: start: 20040204
  13. CIPROBAY [Concomitant]
     Dates: start: 20051010
  14. CEFPODOXIME PROXETIL [Concomitant]
     Dates: start: 20051216
  15. CALCITRIOL [Concomitant]
     Dates: start: 20060111
  16. CALCIUM ACETATE [Concomitant]
     Dates: start: 20010105

REACTIONS (6)
  - HYPOCALCAEMIA [None]
  - PIGMENTATION DISORDER [None]
  - PORPHYRIA [None]
  - SKIN EXFOLIATION [None]
  - SKIN REACTION [None]
  - SKIN ULCER [None]
